FAERS Safety Report 17798025 (Version 1)
Quarter: 2020Q2

REPORT INFORMATION
  Report Type: Spontaneous
  Country: US (occurrence: US)
  Receive Date: 20200516
  Receipt Date: 20200516
  Transmission Date: 20200714
  Serious: Yes (Other)
  Sender: FDA-Public Use
  Company Number: None

PATIENT
  Age: 77 Year
  Sex: Female
  Weight: 58.5 kg

DRUGS (3)
  1. CODEINE SULPHATE TAB 30MG [Suspect]
     Active Substance: CODEINE SULFATE
     Indication: INCONTINENCE
     Dosage: ?          QUANTITY:112 TABLET(S);?
     Route: 048
     Dates: start: 20200405
  2. CODEINE [Concomitant]
     Active Substance: CODEINE
  3. SPIRONOLACTONE. [Concomitant]
     Active Substance: SPIRONOLACTONE

REACTIONS (5)
  - Incontinence [None]
  - Product use issue [None]
  - Diarrhoea [None]
  - Product quality issue [None]
  - Product formulation issue [None]

NARRATIVE: CASE EVENT DATE: 20200426
